FAERS Safety Report 6607109-2 (Version None)
Quarter: 2010Q1

REPORT INFORMATION
  Report Type: 
  Country: None (occurrence: None)
  Receive Date: 20100219
  Receipt Date: 20100206
  Transmission Date: 20100710
  Serious: Yes (Hospitalization)
  Sender: FDA-Public Use
  Company Number: 2010AP000243

PATIENT
  Age: 59 Year
  Sex: Female

DRUGS (1)
  1. LISINOPRIL [Suspect]
     Dosage: 5 MG

REACTIONS (3)
  - GASTROENTERITIS [None]
  - HYPOVOLAEMIA [None]
  - RENAL FAILURE ACUTE [None]
